FAERS Safety Report 6222567-3 (Version None)
Quarter: 2009Q2

REPORT INFORMATION
  Report Type: 
  Country: None (occurrence: None)
  Receive Date: 20090611
  Receipt Date: 20090511
  Transmission Date: 20091009
  Serious: No
  Sender: FDA-Public Use
  Company Number: US-BAYER-200917794NA

PATIENT
  Age: 41 Year
  Sex: Female
  Weight: 54 kg

DRUGS (1)
  1. MIRENA [Suspect]
     Indication: CONTRACEPTION
     Dosage: CONTINUOUS
     Route: 015
     Dates: start: 20040101, end: 20081101

REACTIONS (24)
  - ALLERGIC SINUSITIS [None]
  - ALOPECIA [None]
  - ANXIETY [None]
  - AUTOIMMUNE DISORDER [None]
  - BACK PAIN [None]
  - BREAST TENDERNESS [None]
  - DIZZINESS [None]
  - FATIGUE [None]
  - FEELING COLD [None]
  - HEADACHE [None]
  - HIRSUTISM [None]
  - HYPOAESTHESIA [None]
  - IRRITABILITY [None]
  - LETHARGY [None]
  - LIBIDO DECREASED [None]
  - MENTAL DISORDER [None]
  - MOOD SWINGS [None]
  - PARAESTHESIA [None]
  - POLLAKIURIA [None]
  - SWOLLEN TONGUE [None]
  - TOOTH INFECTION [None]
  - TREMOR [None]
  - VISUAL IMPAIRMENT [None]
  - WEIGHT DECREASED [None]
